FAERS Safety Report 6402106-4 (Version None)
Quarter: 2009Q4

REPORT INFORMATION
  Report Type: 
  Country: None (occurrence: None)
  Receive Date: 20091015
  Receipt Date: 20091008
  Transmission Date: 20100525
  Serious: Yes (Death)
  Sender: FDA-Public Use
  Company Number: JP-NOVOPROD-292656

PATIENT
  Age: 26 Year
  Sex: Female

DRUGS (3)
  1. NOVOSEVEN [Suspect]
     Indication: UTERINE HAEMORRHAGE
     Dosage: 4.8 MG, UNK
     Route: 042
     Dates: start: 20090403, end: 20090403
  2. ATONIN-O [Concomitant]
     Indication: HAEMOSTASIS
     Dosage: 30 U, UNK
  3. METENARIN [Concomitant]
     Indication: HAEMOSTASIS

REACTIONS (2)
  - BRAIN OEDEMA [None]
  - HYPOXIC ENCEPHALOPATHY [None]
